FAERS Safety Report 7481955-8 (Version None)
Quarter: 2011Q2

REPORT INFORMATION
  Report Type: 
  Country: None (occurrence: None)
  Receive Date: 20110516
  Receipt Date: 20110513
  Transmission Date: 20111010
  Serious: Yes (Death, Hospitalization)
  Sender: FDA-Public Use
  Company Number: HU-ABBOTT-11P-076-0725251-00

PATIENT
  Age: 70 Year
  Sex: Female
  Weight: 68 kg

DRUGS (1)
  1. ZEMPLAR [Suspect]
     Indication: RENAL FAILURE CHRONIC
     Dosage: DIALYSIS
     Route: 042
     Dates: start: 20110208

REACTIONS (4)
  - ARTERIAL OCCLUSIVE DISEASE [None]
  - DEATH [None]
  - SEPSIS [None]
  - GANGRENE [None]
